FAERS Safety Report 9297265 (Version 1)
Quarter: 2013Q2

REPORT INFORMATION
  Report Type: Spontaneous
  Country: GB (occurrence: GB)
  Receive Date: 20130520
  Receipt Date: 20130520
  Transmission Date: 20140414
  Serious: Yes (Hospitalization)
  Sender: FDA-Public Use
  Company Number: GB-PFIZER INC-2005138306

PATIENT
  Age: 8 Year
  Sex: Female

DRUGS (2)
  1. IBUPROFEN [Suspect]
     Indication: PYREXIA
     Dosage: 100 MG ONCE (5 MG/KG)
     Route: 065
  2. FLUCLOXACILLIN [Suspect]
     Indication: PYREXIA
     Dosage: UNSPECIFIED
     Route: 065

REACTIONS (1)
  - Renal failure chronic [Not Recovered/Not Resolved]
